FAERS Safety Report 4802807-5 (Version None)
Quarter: 2005Q4

REPORT INFORMATION
  Report Type: 
  Country: None (occurrence: None)
  Receive Date: 20051013
  Receipt Date: 20050926
  Transmission Date: 20060501
  Serious: Yes (Other)
  Sender: FDA-Public Use
  Company Number: FR_050907208

PATIENT
  Age: 64 Year
  Sex: Male

DRUGS (1)
  1. XIGRIS (DROTRECOGIN ALFA (ACTIVATED)) [Suspect]
     Indication: SEPSIS
     Dates: start: 20050920, end: 20050925

REACTIONS (1)
  - THROMBOCYTOPENIA [None]
